FAERS Safety Report 23668052 (Version 1)
Quarter: 2024Q1

REPORT INFORMATION
  Report Type: Spontaneous
  Country: US (occurrence: US)
  Receive Date: 20240325
  Receipt Date: 20240325
  Transmission Date: 20240410
  Serious: Yes (Other)
  Sender: FDA-Public Use
  Company Number: US-HIKMA PHARMACEUTICALS USA INC.-US-H14001-24-02319

PATIENT
  Sex: Male

DRUGS (4)
  1. BICALUTAMIDE [Suspect]
     Active Substance: BICALUTAMIDE
     Indication: Product used for unknown indication
     Dosage: UNK
     Route: 065
     Dates: start: 202308
  2. PREDNISONE [Suspect]
     Active Substance: PREDNISONE
     Indication: Product used for unknown indication
     Dosage: UNK
     Route: 065
     Dates: start: 202310
  3. XTANDI [Suspect]
     Active Substance: ENZALUTAMIDE
     Indication: Product used for unknown indication
     Dosage: UNK
     Route: 065
     Dates: start: 202312
  4. ZYTIGA [Suspect]
     Active Substance: ABIRATERONE ACETATE
     Indication: Product used for unknown indication
     Dosage: UNK
     Route: 065
     Dates: start: 202310

REACTIONS (2)
  - Prostatic specific antigen increased [Unknown]
  - Tissue injury [Unknown]
